FAERS Safety Report 8041662-X (Version None)
Quarter: 2012Q1

REPORT INFORMATION
  Report Type: 
  Country: None (occurrence: None)
  Receive Date: 20120112
  Receipt Date: 20120104
  Transmission Date: 20120608
  Serious: Yes (Hospitalization, Other)
  Sender: FDA-Public Use
  Company Number: US-ELI_LILLY_AND_COMPANY-US201112004820

PATIENT
  Sex: Female

DRUGS (6)
  1. SEROQUEL [Concomitant]
     Dosage: 10 MG, QD
  2. SEROQUEL [Concomitant]
     Dosage: 600 MG, QD
  3. ZYPREXA [Suspect]
     Dosage: 40 MG, QD
  4. ZYPREXA [Suspect]
     Dosage: 10 MG, QD
  5. ZYPREXA [Suspect]
     Dosage: UNK,UNK
  6. ANTIDEPRESSANTS [Concomitant]

REACTIONS (22)
  - NEUROTOXICITY [None]
  - SUICIDAL IDEATION [None]
  - LACERATION [None]
  - ABDOMINAL PAIN [None]
  - METABOLIC SYNDROME [None]
  - ADVERSE REACTION [None]
  - DYSPNOEA [None]
  - AKATHISIA [None]
  - TOXICITY TO VARIOUS AGENTS [None]
  - PSYCHOTIC DISORDER [None]
  - AGITATION [None]
  - MEMORY IMPAIRMENT [None]
  - DELIRIUM [None]
  - HYPOAESTHESIA [None]
  - ASTHENIA [None]
  - OVERDOSE [None]
  - MENTAL DISORDER DUE TO A GENERAL MEDICAL CONDITION [None]
  - CONVULSION [None]
  - INTENTIONAL SELF-INJURY [None]
  - BLOOD CHOLESTEROL INCREASED [None]
  - WEIGHT INCREASED [None]
  - BLOOD PRESSURE INCREASED [None]
